FAERS Safety Report 13682893 (Version 1)
Quarter: 2017Q2

REPORT INFORMATION
  Report Type: Spontaneous
  Country: US (occurrence: US)
  Receive Date: 20170623
  Receipt Date: 20170623
  Transmission Date: 20170830
  Serious: No
  Sender: FDA-Public Use
  Company Number: US-MALLINCKRODT-T201700861

PATIENT

DRUGS (1)
  1. H.P. ACTHAR [Suspect]
     Active Substance: CORTICOTROPIN
     Dosage: UNKNOWN
     Route: 065

REACTIONS (4)
  - Headache [Unknown]
  - Muscle fatigue [Unknown]
  - Fatigue [Unknown]
  - Dizziness [Unknown]
